FAERS Safety Report 9628949 (Version 2)
Quarter: 2014Q1

REPORT INFORMATION
  Report Type: Spontaneous
  Country: US (occurrence: US)
  Receive Date: 20131017
  Receipt Date: 20140326
  Transmission Date: 20141002
  Serious: No
  Sender: FDA-Public Use
  Company Number: US-PFIZER INC-2013294654

PATIENT
  Age: 81 Year
  Sex: Male

DRUGS (2)
  1. INLYTA [Suspect]
     Indication: RENAL CANCER
     Dosage: 5 MG, 2X/DAY
     Dates: start: 20130917
  2. INLYTA [Suspect]
     Dosage: 5 MG, DAILY
     Dates: start: 20131003, end: 20140318

REACTIONS (2)
  - Epistaxis [Unknown]
  - Diarrhoea [Not Recovered/Not Resolved]
